FAERS Safety Report 13913377 (Version 1)
Quarter: 2017Q3

REPORT INFORMATION
  Report Type: Spontaneous
  Country: US (occurrence: US)
  Receive Date: 20170828
  Receipt Date: 20170828
  Transmission Date: 20171127
  Serious: No
  Sender: FDA-Public Use
  Company Number: US-ROCHE-1130621

PATIENT
  Age: 12 Year
  Sex: Female
  Weight: 32.01 kg

DRUGS (1)
  1. NUTROPIN AQ [Suspect]
     Active Substance: SOMATROPIN
     Indication: DWARFISM
     Dosage: INDIVIDUAL DOSES, 6 DAYS A WEEK
     Route: 058

REACTIONS (3)
  - Nasopharyngitis [Unknown]
  - Sinus disorder [Unknown]
  - Oropharyngeal pain [Unknown]

NARRATIVE: CASE EVENT DATE: 19981130
